FAERS Safety Report 8201752-5 (Version None)
Quarter: 2012Q1

REPORT INFORMATION
  Report Type: 
  Country: None (occurrence: None)
  Receive Date: 20120312
  Receipt Date: 20120307
  Transmission Date: 20120608
  Serious: Yes (Other)
  Sender: FDA-Public Use
  Company Number: US-PFIZER INC-2012041250

PATIENT
  Sex: Female
  Weight: 79.4 kg

DRUGS (4)
  1. NAPROXEN [Concomitant]
     Indication: PAIN
     Dosage: 500 MG, 1X/DAY
  2. ZOLOFT [Suspect]
     Indication: ANXIETY
  3. NAPROXEN [Concomitant]
     Indication: INFLAMMATION
  4. ZOLOFT [Suspect]
     Indication: DEPRESSION
     Dosage: 150MG, DAILY
     Route: 048
     Dates: start: 20070101

REACTIONS (5)
  - FIBROMYALGIA [None]
  - DEPRESSION [None]
  - DRUG INEFFECTIVE [None]
  - VITAMIN D DECREASED [None]
  - INTERVERTEBRAL DISC PROTRUSION [None]
